FAERS Safety Report 9269251 (Version 4)
Quarter: 2013Q3

REPORT INFORMATION
  Report Type: Spontaneous
  Country: US (occurrence: US)
  Receive Date: 20130503
  Receipt Date: 20130731
  Transmission Date: 20140515
  Serious: Yes (Death, Other)
  Sender: FDA-Public Use
  Company Number: US-PFIZER INC-2013133285

PATIENT
  Age: 6 Year
  Sex: Male

DRUGS (8)
  1. XALKORI [Suspect]
     Indication: NEUROBLASTOMA
     Dosage: 200 MG, 2X/DAY
     Dates: start: 20130406, end: 20130415
  2. ZYRTEC [Concomitant]
     Dosage: 2.5 MG, 1X/DAY
     Route: 048
     Dates: end: 20130415
  3. CYTARABINE [Concomitant]
     Dosage: 60 MG, CYCLIC (DAY 1-4, 8-11; 21 DAY CYCLE)
     Route: 042
     Dates: end: 20130415
  4. VINORELBINE [Concomitant]
     Dosage: 20 MG, CYCLIC (DAY 1, DAY 8; 21 DAY CYCLE)
     Route: 042
     Dates: end: 20130415
  5. FENTANYL [Concomitant]
     Dosage: 37.5 UG, UNK
  6. MORPHINE [Concomitant]
     Dosage: 8 MG, 3X/DAY
     Route: 048
  7. ZOLOFT [Concomitant]
     Dosage: 25 MG, 1X/DAY
     Route: 048
  8. BACTRIM [Concomitant]
     Dosage: 1/2 TAB BID M, T, W

REACTIONS (7)
  - Off label use [Fatal]
  - Disease progression [Fatal]
  - Neuroblastoma [Fatal]
  - Hypoxia [Unknown]
  - Dyspnoea [Unknown]
  - Faecal incontinence [Unknown]
  - Urinary incontinence [Unknown]
